FAERS Safety Report 4929766-9 (Version None)
Quarter: 2006Q1

REPORT INFORMATION
  Report Type: 
  Country: None (occurrence: None)
  Receive Date: 20060301
  Receipt Date: 20050829
  Transmission Date: 20060701
  Serious: Yes (Hospitalization, Other)
  Sender: FDA-Public Use
  Company Number: US-MERCK-0508USA05088

PATIENT
  Age: 54 Year
  Sex: Female
  Weight: 101 kg

DRUGS (2)
  1. VIOXX [Suspect]
     Indication: PAIN
     Route: 048
  2. VIOXX [Suspect]
     Indication: ARTHRITIS
     Route: 048

REACTIONS (6)
  - ANGIOPATHY [None]
  - CORONARY ARTERY DISEASE [None]
  - CORONARY ARTERY OCCLUSION [None]
  - DYSPNOEA [None]
  - EMBOLISM [None]
  - MYOCARDIAL INFARCTION [None]
